FAERS Safety Report 11350553 (Version 3)
Quarter: 2015Q4

REPORT INFORMATION
  Report Type: Spontaneous
  Country: JP (occurrence: JP)
  Receive Date: 20150807
  Receipt Date: 20151106
  Transmission Date: 20160304
  Serious: Yes (Death)
  Sender: FDA-Public Use
  Company Number: JP-PFIZER INC-2015261694

PATIENT
  Age: 52 Year
  Sex: Male

DRUGS (1)
  1. ANAEMETRO [Suspect]
     Active Substance: METRONIDAZOLE
     Indication: PSEUDOMEMBRANOUS COLITIS
     Dosage: 1500 MG, DAILY
     Route: 041
     Dates: start: 20150803, end: 20150803

REACTIONS (2)
  - Condition aggravated [Fatal]
  - Hepatic neoplasm [Fatal]

NARRATIVE: CASE EVENT DATE: 20150804
